FAERS Safety Report 25403494 (Version 1)
Quarter: 2025Q2

REPORT INFORMATION
  Report Type: Report from Study
  Country: BR (occurrence: BR)
  Receive Date: 20250605
  Receipt Date: 20250605
  Transmission Date: 20250716
  Serious: Yes (Hospitalization, Other)
  Sender: ELI LILLY AND COMPANY
  Company Number: BR-ELI_LILLY_AND_COMPANY-BR202401002242

PATIENT
  Age: 86 Year
  Sex: Female

DRUGS (8)
  1. FORTEO [Suspect]
     Active Substance: TERIPARATIDE
     Indication: Osteoporosis
     Dosage: 20 UG, DAILY
     Route: 058
  2. FORTEO [Suspect]
     Active Substance: TERIPARATIDE
     Dosage: 20 UG, DAILY
     Route: 058
     Dates: start: 20230920
  3. FORTEO [Suspect]
     Active Substance: TERIPARATIDE
     Dosage: 20 UG, DAILY
     Route: 058
     Dates: start: 20230920
  4. FORTEO [Suspect]
     Active Substance: TERIPARATIDE
     Dosage: 20 UG, UNKNOWN
     Route: 058
  5. FORTEO [Suspect]
     Active Substance: TERIPARATIDE
     Dosage: 20 UG, DAILY
     Route: 065
  6. FORTEO [Suspect]
     Active Substance: TERIPARATIDE
     Dosage: 20 UG, DAILY
     Route: 048
     Dates: start: 20230920
  7. FORTEO [Suspect]
     Active Substance: TERIPARATIDE
     Dosage: 20 UG, DAILY
     Route: 048
  8. SIMVASTATIN [Concomitant]
     Active Substance: SIMVASTATIN
     Indication: Product used for unknown indication
     Route: 065

REACTIONS (39)
  - Dengue fever [Recovering/Resolving]
  - Pain in extremity [Unknown]
  - Paraesthesia [Not Recovered/Not Resolved]
  - Pruritus [Recovering/Resolving]
  - Somnolence [Not Recovered/Not Resolved]
  - Fall [Recovering/Resolving]
  - Scratch [Recovering/Resolving]
  - Visual impairment [Unknown]
  - Labyrinthitis [Not Recovered/Not Resolved]
  - Fall [Unknown]
  - Posture abnormal [Unknown]
  - Body height decreased [Unknown]
  - Head discomfort [Not Recovered/Not Resolved]
  - Asthenia [Recovering/Resolving]
  - Diarrhoea [Unknown]
  - Decreased appetite [Unknown]
  - Dysphonia [Unknown]
  - Memory impairment [Unknown]
  - Procedural pain [Unknown]
  - Gait disturbance [Unknown]
  - Feeling hot [Not Recovered/Not Resolved]
  - Pain [Not Recovered/Not Resolved]
  - Dysphemia [Unknown]
  - Abdominal discomfort [Unknown]
  - Lactose intolerance [Unknown]
  - Inflammation [Unknown]
  - Arthralgia [Unknown]
  - Pain in extremity [Unknown]
  - Musculoskeletal stiffness [Unknown]
  - Muscle rigidity [Unknown]
  - Labyrinthitis [Unknown]
  - Hypoacusis [Unknown]
  - Incorrect route of product administration [Unknown]
  - Arthritis [Unknown]
  - Osteoarthritis [Unknown]
  - Dysstasia [Unknown]
  - Impaired healing [Unknown]
  - Akathisia [Unknown]
  - Nausea [Not Recovered/Not Resolved]

NARRATIVE: CASE EVENT DATE: 20240101
